FAERS Safety Report 6934963-7 (Version None)
Quarter: 2010Q3

REPORT INFORMATION
  Report Type: 
  Country: None (occurrence: None)
  Receive Date: 20100821
  Receipt Date: 20100816
  Transmission Date: 20110219
  Serious: Yes (Death, Life-Threatening, Hospitalization, Other)
  Sender: FDA-Public Use
  Company Number: PHHY2010US48817

PATIENT
  Sex: Female

DRUGS (25)
  1. RECLAST [Suspect]
     Indication: OSTEOPOROSIS POSTMENOPAUSAL
     Dosage: 5 MG
     Route: 042
     Dates: start: 20100707
  2. TOPROL-XL [Concomitant]
     Dosage: 100 QD
  3. COZAAR [Concomitant]
     Dosage: 100 QD, 1 TABLET DAILY
     Route: 048
     Dates: start: 20100317
  4. CELEBREX [Concomitant]
     Dosage: 200 QD
     Route: 048
     Dates: start: 20070604
  5. PLAVIX [Concomitant]
     Dosage: 75 QD
     Dates: start: 20080609
  6. ASPIRIN [Concomitant]
     Dosage: 81 MG, DAILY
     Route: 048
     Dates: start: 20090310
  7. VESICARE [Concomitant]
     Dosage: 10 MG, UNK
     Route: 048
     Dates: start: 20081209
  8. ZOCOR [Concomitant]
     Dosage: 40 MG, 1 TABLET
     Route: 048
     Dates: start: 20090909
  9. CITRACAL [Concomitant]
  10. BYSTOLIC [Concomitant]
     Dosage: 10 MG, UNK
     Route: 048
     Dates: start: 20090310
  11. FISH OIL [Concomitant]
  12. ZYRTEC [Concomitant]
     Dosage: 10 QD
  13. ULTRAM [Concomitant]
     Dosage: 50 Q6H, PRN
  14. MULTI-VITAMINS [Concomitant]
     Dosage: UNK
     Route: 048
     Dates: start: 20061102
  15. OMEGA-3 FATTY ACIDS [Concomitant]
     Dosage: UNK
     Dates: start: 20070108
  16. ACTONEL [Concomitant]
     Dosage: 150 MG, UNK
     Route: 048
     Dates: start: 20090310
  17. COENZYME Q10 [Concomitant]
     Dosage: 60 MG, UNK
     Route: 048
     Dates: start: 20090310
  18. FORTICAL [Concomitant]
     Dosage: 200 U, UNK
     Dates: start: 20090310
  19. KLOR-CON [Concomitant]
     Dosage: UNK
     Dates: start: 20100218
  20. MAGNESIUM OXIDE [Concomitant]
     Dosage: 250 MG, UNK
     Route: 048
     Dates: start: 20100309
  21. MEGESTROL ACETATE [Concomitant]
     Dosage: 40 MG, BID
     Route: 048
     Dates: start: 20100419
  22. PROTONIX [Concomitant]
     Dosage: 40 MG, UNK
     Route: 048
     Dates: start: 20100317
  23. VITAMINE D [Concomitant]
     Dosage: 200-250 MG
     Route: 048
     Dates: start: 20100616
  24. NITROFURANTOIN [Concomitant]
     Dosage: UNK
     Route: 048
     Dates: start: 20100722
  25. KEFLEX [Concomitant]
     Dosage: 500 MG, TID
     Route: 048
     Dates: start: 20100726

REACTIONS (24)
  - BACK PAIN [None]
  - BONE PAIN [None]
  - CHEST PAIN [None]
  - DEHYDRATION [None]
  - DIPLOPIA [None]
  - DYSPHAGIA [None]
  - DYSPNOEA [None]
  - FALL [None]
  - HAEMATEMESIS [None]
  - HEAD INJURY [None]
  - HEADACHE [None]
  - MUSCLE SPASMS [None]
  - MUSCULAR WEAKNESS [None]
  - NAUSEA [None]
  - NECK PAIN [None]
  - PAIN [None]
  - PAIN IN EXTREMITY [None]
  - PAIN IN JAW [None]
  - PARAESTHESIA [None]
  - RESUSCITATION [None]
  - SHOCK [None]
  - UNRESPONSIVE TO STIMULI [None]
  - VISION BLURRED [None]
  - VOMITING [None]
